FAERS Safety Report 8876899 (Version 2)
Quarter: 2013Q2

REPORT INFORMATION
  Report Type: Spontaneous
  Country: US (occurrence: None)
  Receive Date: 20120426
  Receipt Date: 20120703
  Transmission Date: 20140414
  Serious: Yes (Other)
  Sender: FDA-Public Use
  Company Number: PHEH2012US003563

PATIENT
  Age: 46 Year
  Sex: Female
  Weight: 96.6 kg

DRUGS (5)
  1. GILENYA [Suspect]
     Indication: MULTIPLE SCLEROSIS
     Route: 048
     Dates: start: 20120208, end: 20120208
  2. METOPROLOL (METOPROLOL) [Concomitant]
  3. NEXIUM (ESOMEPRAZOLE MAGNESIUM) [Concomitant]
  4. VALIUM (DIAZEPAM) [Concomitant]
  5. TRIAMTERENE AND HYDROCHLOROTHIAZID HYDROCHLOROTHIAZIDE, TRIAMTERENE) [Concomitant]

REACTIONS (4)
  - Hyperhidrosis [None]
  - Dizziness [None]
  - Asthenia [None]
  - Heart rate decreased [None]
